FAERS Safety Report 9916112 (Version 3)
Quarter: 2014Q2

REPORT INFORMATION
  Report Type: Report from Study
  Country: MY (occurrence: MY)
  Receive Date: 20140221
  Receipt Date: 20140616
  Transmission Date: 20141212
  Serious: Yes (Hospitalization)
  Sender: FDA-Public Use
  Company Number: 201402062

PATIENT
  Age: 32 Year
  Sex: Male
  Weight: 51 kg

DRUGS (2)
  1. SM-13496 [Suspect]
     Indication: SCHIZOPHRENIA
     Route: 048
     Dates: start: 20131209, end: 20131212
  2. LORAZEPAM [Concomitant]
     Indication: AGITATION
     Route: 048
     Dates: start: 20131118, end: 20131212

REACTIONS (1)
  - Schizophrenia [Recovered/Resolved]
